FAERS Safety Report 9577931 (Version 1)
Quarter: 2013Q4

REPORT INFORMATION
  Report Type: Spontaneous
  Country: US (occurrence: US)
  Receive Date: 20131001
  Receipt Date: 20131001
  Transmission Date: 20140711
  Serious: No
  Sender: FDA-Public Use
  Company Number: US-AMGEN-USASP2013010339

PATIENT
  Age: 39 Year
  Sex: Male
  Weight: 97.51 kg

DRUGS (1)
  1. ENBREL [Suspect]
     Indication: PSORIASIS
     Dosage: UNK UNK, QWK
     Dates: start: 200702, end: 200702

REACTIONS (1)
  - Laboratory test abnormal [Recovered/Resolved]
